FAERS Safety Report 24025151 (Version 1)
Quarter: 2024Q2

REPORT INFORMATION
  Report Type: Spontaneous
  Country: US (occurrence: US)
  Receive Date: 20240628
  Receipt Date: 20240628
  Transmission Date: 20240716
  Serious: No
  Sender: FDA-Public Use
  Company Number: US-ROCHE-3411910

PATIENT
  Age: 40 Year
  Sex: Female
  Weight: 49.0 kg

DRUGS (1)
  1. ALECENSA [Suspect]
     Active Substance: ALECTINIB HYDROCHLORIDE
     Indication: Non-small cell lung cancer metastatic
     Dosage: 4 TABLETS EVERY 12 HOURS WITH FOOD
     Route: 048
     Dates: start: 20230809

REACTIONS (3)
  - Joint swelling [Not Recovered/Not Resolved]
  - Pain [Unknown]
  - Taste disorder [Not Recovered/Not Resolved]

NARRATIVE: CASE EVENT DATE: 20230824
